FAERS Safety Report 18812624 (Version 1)
Quarter: 2021Q1

REPORT INFORMATION
  Report Type: Report from Study
  Country: None (occurrence: CO)
  Receive Date: 20210130
  Receipt Date: 20210130
  Transmission Date: 20210419
  Serious: Yes (Hospitalization)
  Sender: FDA-Public Use
  Company Number: CO-ABBVIE-21K-036-3753473-00

PATIENT
  Age: 1 Month
  Sex: Male
  Weight: 3 kg

DRUGS (2)
  1. DOMPERIDONE [Concomitant]
     Active Substance: DOMPERIDONE
     Indication: GASTROOESOPHAGEAL REFLUX PROPHYLAXIS
     Route: 048
     Dates: start: 202012
  2. SYNAGIS [Suspect]
     Active Substance: PALIVIZUMAB
     Indication: BRONCHOPULMONARY DYSPLASIA
     Route: 030
     Dates: start: 20201229

REACTIONS (5)
  - Cyanosis [Recovering/Resolving]
  - Irregular breathing [Recovering/Resolving]
  - Bronchiolitis [Recovering/Resolving]
  - Dyspnoea [Unknown]
  - Anaemia [Recovering/Resolving]

NARRATIVE: CASE EVENT DATE: 202101
